FAERS Safety Report 5854595-1 (Version None)
Quarter: 2008Q3

REPORT INFORMATION
  Report Type: 
  Country: None (occurrence: None)
  Receive Date: 20080822
  Receipt Date: 20071015
  Transmission Date: 20090109
  Serious: No
  Sender: FDA-Public Use
  Company Number: US-ABBOTT-07P-163-0421273-00

PATIENT
  Sex: Female
  Weight: 78.542 kg

DRUGS (8)
  1. SYNTHROID [Suspect]
     Indication: HYPOTHYROIDISM
     Route: 048
  2. SYNTHROID [Suspect]
     Route: 048
  3. COLESTYRAMINE [Concomitant]
     Indication: DRUG USE FOR UNKNOWN INDICATION
     Route: 048
  4. OMEPRAZOLE [Concomitant]
     Indication: DRUG USE FOR UNKNOWN INDICATION
     Route: 048
  5. HORMONE PATCH [Concomitant]
     Indication: DRUG USE FOR UNKNOWN INDICATION
     Route: 062
  6. TRIMETHOBENZAMIDE HYDROCHLORIDE [Concomitant]
     Indication: DRUG USE FOR UNKNOWN INDICATION
     Route: 048
  7. HYZAAR [Concomitant]
     Indication: DRUG USE FOR UNKNOWN INDICATION
     Route: 048
  8. HYOSCYAMINE SULFATE [Concomitant]
     Indication: DRUG USE FOR UNKNOWN INDICATION
     Route: 048

REACTIONS (6)
  - FATIGUE [None]
  - INFLUENZA LIKE ILLNESS [None]
  - INSOMNIA [None]
  - IRRITABILITY [None]
  - KIDNEY INFECTION [None]
  - NERVOUSNESS [None]
